FAERS Safety Report 7701819-1 (Version None)
Quarter: 2011Q3

REPORT INFORMATION
  Report Type: 
  Country: None (occurrence: None)
  Receive Date: 20110822
  Receipt Date: 20110812
  Transmission Date: 20111222
  Serious: Yes (Hospitalization, Other)
  Sender: FDA-Public Use
  Company Number: US-BAYER-2011-046327

PATIENT
  Age: 45 Year
  Sex: Female
  Weight: 58.957 kg

DRUGS (2)
  1. YAZ [Suspect]
     Indication: MENOPAUSE
  2. YAZ [Suspect]
     Indication: CONTRACEPTION
     Dosage: UNK
     Dates: start: 20080801, end: 20090704

REACTIONS (7)
  - DYSPNOEA [None]
  - PUNCTURE SITE HAEMORRHAGE [None]
  - PULMONARY EMBOLISM [None]
  - OEDEMA [None]
  - CHEST PAIN [None]
  - ADMINISTRATION SITE REACTION [None]
  - CONTUSION [None]
